FAERS Safety Report 16880327 (Version 1)
Quarter: 2019Q4

REPORT INFORMATION
  Report Type: Spontaneous
  Country: CA (occurrence: CA)
  Receive Date: 20191003
  Receipt Date: 20191003
  Transmission Date: 20200122
  Serious: Yes (Hospitalization, Other)
  Sender: FDA-Public Use
  Company Number: CA-TEVA-2019-CA-1116690

PATIENT
  Sex: Female
  Weight: 3 kg

DRUGS (8)
  1. DIPHENHYDRAMINE. [Suspect]
     Active Substance: DIPHENHYDRAMINE
     Route: 064
  2. METHOCARBAMOL. [Suspect]
     Active Substance: METHOCARBAMOL
     Route: 064
  3. ACETAMINOPHEN. [Suspect]
     Active Substance: ACETAMINOPHEN
     Route: 064
  4. LORATADINE. [Suspect]
     Active Substance: LORATADINE
     Route: 064
  5. VALACICLOVIR HCL [Suspect]
     Active Substance: VALACYCLOVIR HYDROCHLORIDE
     Route: 064
  6. CITALOPRAM [Suspect]
     Active Substance: CITALOPRAM HYDROBROMIDE
     Route: 064
  7. RANITIDINE. [Suspect]
     Active Substance: RANITIDINE
     Route: 064
  8. SALBUTAMOL [Suspect]
     Active Substance: ALBUTEROL
     Route: 064

REACTIONS (2)
  - Foetal exposure during pregnancy [Recovered/Resolved]
  - Drug withdrawal syndrome neonatal [Recovered/Resolved]
